FAERS Safety Report 7518395-9 (Version None)
Quarter: 2011Q2

REPORT INFORMATION
  Report Type: 
  Country: None (occurrence: None)
  Receive Date: 20110602
  Receipt Date: 20110527
  Transmission Date: 20111010
  Serious: Yes (Hospitalization)
  Sender: FDA-Public Use
  Company Number: US-AMGEN-USASP2011024972

PATIENT
  Age: 83 Year
  Sex: Male
  Weight: 97.959 kg

DRUGS (5)
  1. ISOSORBIDE DINITRATE [Concomitant]
     Dosage: 30 MG, QD
     Route: 048
  2. PREDNISONE [Concomitant]
     Dosage: 5 MG, UNK
     Route: 048
  3. NPLATE [Suspect]
     Indication: IDIOPATHIC THROMBOCYTOPENIC PURPURA
     Dosage: 200 A?G, QWK
     Route: 058
     Dates: start: 20090101
  4. METOPROLOL TARTRATE [Concomitant]
     Dosage: 50 MG, QD
     Route: 048
  5. FOLIC ACID [Concomitant]
     Dosage: 1 MG, QD
     Route: 048

REACTIONS (1)
  - HIP FRACTURE [None]
